FAERS Safety Report 14783652 (Version 2)
Quarter: 2018Q2

REPORT INFORMATION
  Report Type: Spontaneous
  Country: US (occurrence: US)
  Receive Date: 20180420
  Receipt Date: 20180515
  Transmission Date: 20180711
  Serious: No
  Sender: FDA-Public Use
  Company Number: US-ALKERMES INC.-ALK-2018-002203

PATIENT
  Age: 20 Year
  Sex: Female
  Weight: 49.89 kg

DRUGS (1)
  1. ARISTADA [Suspect]
     Active Substance: ARIPIPRAZOLE LAUROXIL
     Indication: SCHIZOPHRENIA
     Dosage: 441 MG, QMO
     Route: 030
     Dates: start: 20180410

REACTIONS (4)
  - Injection site urticaria [Not Recovered/Not Resolved]
  - Injection site pain [Recovered/Resolved]
  - Injection site mass [Not Recovered/Not Resolved]
  - Injection site induration [Unknown]

NARRATIVE: CASE EVENT DATE: 201804
